FAERS Safety Report 11585831 (Version 1)
Quarter: 2015Q4

REPORT INFORMATION
  Report Type: Report from Study
  Country: US (occurrence: US)
  Receive Date: 20151001
  Receipt Date: 20151001
  Transmission Date: 20160304
  Serious: Yes (Death, Other)
  Sender: FDA-Public Use
  Company Number: US-MALLINCKRODT-T201503811

PATIENT
  Age: 70 Year
  Sex: Female

DRUGS (1)
  1. REPOSITORY CORTICOTROPIN INJECTION [Suspect]
     Active Substance: CORTICOTROPIN
     Indication: SARCOIDOSIS
     Dosage: 80 UNITS TWICE WKLY
     Route: 065
     Dates: start: 20150730, end: 20150803

REACTIONS (9)
  - Oedema [Unknown]
  - Rash erythematous [Unknown]
  - Death [Fatal]
  - Haemorrhage [Unknown]
  - Peripheral swelling [Unknown]
  - Somnolence [Unknown]
  - Disorientation [Unknown]
  - Memory impairment [Unknown]
  - Malaise [Unknown]

NARRATIVE: CASE EVENT DATE: 20150812
